FAERS Safety Report 8833028 (Version 1)
Quarter: 2012Q4

REPORT INFORMATION
  Report Type: Spontaneous
  Country: US (occurrence: None)
  Receive Date: 20121009
  Receipt Date: 20121009
  Transmission Date: 20130627
  Serious: Yes (Other)
  Sender: FDA-Public Use
  Company Number: None

PATIENT
  Age: 69 Year
  Sex: Female
  Weight: 96.1 kg

DRUGS (19)
  1. REVATIO [Suspect]
     Indication: PULMONARY ARTERIAL HYPERTENSION
     Dosage: 3X/DAY
  2. METOPROLOL TARTRATE [Suspect]
  3. DILTIAZEM HCL [Suspect]
     Route: 048
  4. OMEGA-3 FISH OIL [Suspect]
  5. CALCIUM CARBONATE [Suspect]
  6. CITALOPRAM HBR [Suspect]
     Route: 048
  7. TRACLEER (BOSENTAN) [Suspect]
  8. TRAMADOL HYDROCHLORIDE AND ACETAMINOPHEN [Suspect]
     Route: 048
  9. DIGOXIN (DIGOXIN) [Suspect]
  10. METOLAZONE [Suspect]
  11. PEPCID [Suspect]
  12. ALLOPURINOL [Suspect]
     Dosage: 2 half tablet of
     Route: 048
  13. COUMADIN (WARFARIN SODIUM) [Suspect]
  14. COUMADIN (WARFARIN SODIUM) [Suspect]
     Dosage: except Thursday
  15. COUMADIN (WARFARIN SODIUM) [Suspect]
     Dosage: on thursday
  16. KLOR-CON [Suspect]
     Dosage: 20MEQ,
  17. IRON [Suspect]
     Route: 048
  18. MAGNESIUM [Suspect]
  19. ZINC [Suspect]

REACTIONS (8)
  - Pruritus [None]
  - Generalised oedema [None]
  - Urticaria [None]
  - Drug interaction [None]
  - Oedema peripheral [None]
  - Insomnia [None]
  - Restlessness [None]
  - Gait disturbance [None]
